FAERS Safety Report 7767887 (Version 2)
Quarter: 2016Q1

REPORT INFORMATION
  Report Type: Report from Study
  Country: JP (occurrence: JP)
  Receive Date: 20110120
  Receipt Date: 20160316
  Transmission Date: 20160526
  Serious: Yes (Death)
  Sender: FDA-Public Use
  Company Number: PHHY2010JP31407

PATIENT
  Age: 78 Year
  Sex: Female
  Weight: 53 kg

DRUGS (5)
  1. ICL670A [Suspect]
     Active Substance: DEFERASIROX
     Indication: MYELODYSPLASTIC SYNDROME
     Dosage: 500 MG, UNK
     Route: 048
     Dates: start: 20090908
  2. RED BLOOD CELLS, CONCENTRATED [Concomitant]
     Active Substance: HUMAN RED BLOOD CELL
     Indication: PRODUCT USED FOR UNKNOWN INDICATION
     Dosage: 2 U, EVERY 1-2 WEEKS
     Route: 065
  3. ALFAROL [Concomitant]
     Active Substance: ALFACALCIDOL
     Indication: MYELODYSPLASTIC SYNDROME
     Dosage: 1 UG, UNK
     Route: 048
     Dates: start: 20080830
  4. GLAKAY [Concomitant]
     Active Substance: MENATETRENONE
     Indication: MYELODYSPLASTIC SYNDROME
     Dosage: 45 MG, UNK
     Route: 048
     Dates: start: 20080830
  5. ICL670A [Suspect]
     Active Substance: DEFERASIROX
     Dosage: 500 MG, QD
     Route: 048
     Dates: start: 20090908

REACTIONS (8)
  - Malignant neoplasm progression [Fatal]
  - Myelodysplastic syndrome transformation [Fatal]
  - Blood creatinine increased [Fatal]
  - Leukaemia [Fatal]
  - Blood urea increased [Fatal]
  - Proteinuria [Not Recovered/Not Resolved]
  - White blood cell count increased [Fatal]
  - Blood lactate dehydrogenase increased [Fatal]

NARRATIVE: CASE EVENT DATE: 20091013
